FAERS Safety Report 20686137 (Version 1)
Quarter: 2022Q2

REPORT INFORMATION
  Report Type: Spontaneous
  Country: US (occurrence: US)
  Receive Date: 20220407
  Receipt Date: 20220407
  Transmission Date: 20220721
  Serious: No
  Sender: FDA-Public Use
  Company Number: US-JAZZ-2021-US-023422

PATIENT
  Sex: Female
  Weight: 58.957 kg

DRUGS (3)
  1. SUNOSI [Suspect]
     Active Substance: SOLRIAMFETOL
     Indication: Somnolence
     Dosage: 75 MILLIGRAM, EVERY MORNING
     Route: 048
  2. SUNOSI [Suspect]
     Active Substance: SOLRIAMFETOL
     Dosage: 150 MILLIGRAM, EVERY MORNING
     Route: 048
     Dates: end: 2021
  3. SUNOSI [Suspect]
     Active Substance: SOLRIAMFETOL
     Dosage: 150 MILLIGRAM, EVERY MORNING
     Route: 048
     Dates: start: 2021

REACTIONS (2)
  - Toothache [Recovered/Resolved]
  - Dry mouth [Unknown]
